FAERS Safety Report 11741595 (Version 8)
Quarter: 2016Q2

REPORT INFORMATION
  Report Type: Report from Study
  Country: FR (occurrence: FR)
  Receive Date: 20151116
  Receipt Date: 20160404
  Transmission Date: 20160815
  Serious: Yes (Hospitalization)
  Sender: FDA-Public Use
  Company Number: FR-ROCHE-1658091

PATIENT
  Age: 45 Year
  Sex: Female
  Weight: 54 kg

DRUGS (23)
  1. TRASTUZUMAB [Suspect]
     Active Substance: TRASTUZUMAB
     Dosage: FOR 17 CYCLES AS PER PROTOCOL, MAINTENANCE DOSE, THE MOST RECENT DOSE PRIOR TO EVENT WAS 325 MG ON 2
     Route: 042
  2. PACLITAXEL. [Suspect]
     Active Substance: PACLITAXEL
     Indication: HER-2 POSITIVE BREAST CANCER
     Dosage: ADMINISTERED TOTAL OF 12 WEEKS AS PER PROTOCOL, ?THE MOST RECENT DOSE PRIOR TO EVENT WAS 130 MG ON 0
     Route: 042
     Dates: start: 20150902
  3. CYCLOPHOSPHAMIDE. [Suspect]
     Active Substance: CYCLOPHOSPHAMIDE
     Indication: HER-2 POSITIVE BREAST CANCER
     Dosage: ADMINISTERED 4 CYCLES (CYCLES 1-4) AS PER PROTOCOL, DOSE OF MOST RECENT ADMINISTRATION: 1000 MG, DAT
     Route: 042
     Dates: start: 20150703
  4. AMOXICILLINE [Concomitant]
     Active Substance: AMOXICILLIN
     Indication: URINARY TRACT INFECTION
     Route: 048
     Dates: start: 201511, end: 20151123
  5. MIRENA [Concomitant]
     Active Substance: LEVONORGESTREL
     Indication: CONTRACEPTION
  6. DEXAMETHASONE. [Concomitant]
     Active Substance: DEXAMETHASONE
     Indication: PROPHYLAXIS
     Route: 042
     Dates: start: 20150703, end: 20151117
  7. RANIPLEX [Concomitant]
     Active Substance: RANITIDINE HYDROCHLORIDE
     Indication: PROPHYLAXIS
     Route: 042
     Dates: start: 20150901, end: 20151117
  8. TRASTUZUMAB [Suspect]
     Active Substance: TRASTUZUMAB
     Indication: HER-2 POSITIVE BREAST CANCER
     Dosage: LOADING DOSE
     Route: 042
     Dates: start: 20150902
  9. DOXORUBICIN [Suspect]
     Active Substance: DOXORUBICIN
     Indication: HER-2 POSITIVE BREAST CANCER
     Dosage: ADMINISTERED 4 CYCLES  (CYCLES 1-4) AS PER PROTOCOL, DOSE OF MOST RECENT ADMINISTRATION: 100 MG, DAT
     Route: 042
     Dates: start: 20150703
  10. CHLORHEXIDIN [Concomitant]
     Indication: APHTHOUS ULCER
     Route: 048
     Dates: start: 20150703
  11. KYTRIL [Concomitant]
     Active Substance: GRANISETRON HYDROCHLORIDE
     Indication: PROPHYLAXIS
     Route: 048
     Dates: start: 20150703
  12. PARACETAMOL [Concomitant]
     Active Substance: ACETAMINOPHEN
     Indication: URINARY TRACT INFECTION
     Route: 048
     Dates: start: 201511, end: 20151116
  13. POLARAMINE [Concomitant]
     Active Substance: DEXCHLORPHENIRAMINE MALEATE
     Indication: PROPHYLAXIS
     Route: 042
     Dates: start: 20150901, end: 20151117
  14. PERTUZUMAB [Suspect]
     Active Substance: PERTUZUMAB
     Dosage: FOR 17 CYCLES AS PER PROTOCOL, MAINTENANCE DOSE, THE MOST RECENT DOSE PRIOR TO EVENT WAS 420 MG ON 2
     Route: 042
  15. TRAZEPAM [Concomitant]
     Active Substance: DIAZEPAM
     Indication: INSOMNIA
     Route: 048
  16. PRIMPERAN [Concomitant]
     Active Substance: METOCLOPRAMIDE HYDROCHLORIDE
     Indication: NAUSEA
     Route: 048
     Dates: start: 20150703, end: 20151117
  17. ZARZIO [Concomitant]
     Active Substance: FILGRASTIM
     Indication: PROPHYLAXIS
     Route: 058
     Dates: start: 20150703
  18. CHLOROBUTANOL [Concomitant]
     Active Substance: CHLOROBUTANOL
     Indication: APHTHOUS ULCER
     Route: 048
     Dates: start: 20150703
  19. LEVOTHYROX [Concomitant]
     Active Substance: LEVOTHYROXINE
     Indication: HYPOTHYROIDISM
     Route: 048
  20. NORFLOXACINE [Concomitant]
     Active Substance: NORFLOXACIN
     Indication: URINARY TRACT INFECTION
     Route: 048
     Dates: start: 20151002, end: 20151009
  21. PERTUZUMAB [Suspect]
     Active Substance: PERTUZUMAB
     Indication: HER-2 POSITIVE BREAST CANCER
     Dosage: LOADING DOSE
     Route: 042
     Dates: start: 20150901
  22. EMEND [Concomitant]
     Active Substance: APREPITANT
     Indication: VOMITING
     Route: 048
     Dates: start: 20150603
  23. LEVOMENTHOL [Concomitant]
     Active Substance: LEVOMENTHOL
     Indication: APHTHOUS ULCER
     Route: 048
     Dates: start: 20150703

REACTIONS (1)
  - Urinary tract infection [Recovered/Resolved]

NARRATIVE: CASE EVENT DATE: 20151009
